FAERS Safety Report 16399934 (Version 1)
Quarter: 2020Q3

REPORT INFORMATION
  Report Type: Report from Study
  Country: IT (occurrence: IT)
  Receive Date: 20190606
  Receipt Date: 20190606
  Transmission Date: 20201104
  Serious: Yes (Hospitalization)
  Sender: FDA-Public Use
  Company Number: IT-JNJFOC-20181218904

PATIENT
  Age: 65 Year
  Sex: Female
  Weight: 90 kg

DRUGS (4)
  1. TRABECTEDIN [Suspect]
     Active Substance: TRABECTEDIN
     Indication: OVARIAN CANCER
     Dosage: CYCLE 1, INTENDED DOSE 1.1 UNSPECIFIED UNITS, ADMINISTERED DOSE 1.1 UNSPECIFIED UNITS
     Route: 042
     Dates: start: 20170117
  2. PLD [Suspect]
     Active Substance: DOXORUBICIN HYDROCHLORIDE
     Indication: OVARIAN CANCER
     Dosage: CYCLE 2
     Route: 042
     Dates: start: 20170214
  3. PLD [Suspect]
     Active Substance: DOXORUBICIN HYDROCHLORIDE
     Indication: OVARIAN CANCER
     Dosage: CYCLE 1, INTENDED DOSE 30 UNSPECIFIED UNITS, ADMINISTERED DOSE 30 UNSPECIFIED UNITS
     Route: 042
     Dates: start: 20170117
  4. TRABECTEDIN [Suspect]
     Active Substance: TRABECTEDIN
     Indication: OVARIAN CANCER
     Dosage: CYCLE 2
     Route: 042
     Dates: start: 20170214

REACTIONS (3)
  - Vomiting [Recovered/Resolved]
  - Pyrexia [Recovered/Resolved]
  - Hepatobiliary disease [Recovered/Resolved]

NARRATIVE: CASE EVENT DATE: 20170121
